FAERS Safety Report 8004516-0 (Version None)
Quarter: 2011Q4

REPORT INFORMATION
  Report Type: 
  Country: None (occurrence: None)
  Receive Date: 20111221
  Receipt Date: 20111221
  Transmission Date: 20120403
  Serious: Yes (Hospitalization)
  Sender: FDA-Public Use
  Company Number: None

PATIENT
  Age: 48 Year
  Sex: Female
  Weight: 98.4 kg

DRUGS (2)
  1. MELOXICAM [Suspect]
     Dosage: 15MG DAILY PO CHRONIC
     Route: 048
  2. VALACYCLOVIR [Suspect]
     Dosage: 1GM Q 8 HR PO CHRONIC
     Route: 048

REACTIONS (5)
  - RESPIRATORY FAILURE [None]
  - HYPOTENSION [None]
  - RENAL TUBULAR NECROSIS [None]
  - POLYMEDICATION [None]
  - RENAL FAILURE ACUTE [None]
